FAERS Safety Report 4852864-5 (Version None)
Quarter: 2005Q4

REPORT INFORMATION
  Report Type: 
  Country: None (occurrence: None)
  Receive Date: 20051212
  Receipt Date: 20051201
  Transmission Date: 20060501
  Serious: Yes (Hospitalization)
  Sender: FDA-Public Use
  Company Number: 2005-05-1764

PATIENT
  Age: 57 Year
  Sex: Female
  Weight: 49 kg

DRUGS (6)
  1. PEG-INTRON [Suspect]
     Indication: HEPATITIS C
     Dosage: SEE IMAGE
     Route: 058
     Dates: start: 20050324, end: 20050407
  2. PEG-INTRON [Suspect]
     Indication: HEPATITIS C
     Dosage: SEE IMAGE
     Route: 058
     Dates: start: 20050324, end: 20050512
  3. PEG-INTRON [Suspect]
     Indication: HEPATITIS C
     Dosage: SEE IMAGE
     Route: 058
     Dates: start: 20050414, end: 20050512
  4. REBETOL [Suspect]
     Indication: HEPATITIS C
     Dosage: 600-400 MG ORAL; 600 MG ORAL; 400 MG ORAL
     Route: 048
     Dates: start: 20050329, end: 20050420
  5. REBETOL [Suspect]
     Indication: HEPATITIS C
     Dosage: 600-400 MG ORAL; 600 MG ORAL; 400 MG ORAL
     Route: 048
     Dates: start: 20050329, end: 20050512
  6. REBETOL [Suspect]
     Indication: HEPATITIS C
     Dosage: 600-400 MG ORAL; 600 MG ORAL; 400 MG ORAL
     Route: 048
     Dates: start: 20050421, end: 20050512

REACTIONS (7)
  - BLISTER [None]
  - HAEMOGLOBIN DECREASED [None]
  - INJECTION SITE ERYTHEMA [None]
  - INJECTION SITE VESICLES [None]
  - PLATELET COUNT DECREASED [None]
  - RASH ERYTHEMATOUS [None]
  - STEVENS-JOHNSON SYNDROME [None]
